FAERS Safety Report 9201113 (Version 1)
Quarter: 2013Q2

REPORT INFORMATION
  Report Type: Spontaneous
  Country: US (occurrence: US)
  Receive Date: 20130401
  Receipt Date: 20130401
  Transmission Date: 20140414
  Serious: No
  Sender: FDA-Public Use
  Company Number: US-PFIZER INC-2013103232

PATIENT
  Age: 63 Year
  Sex: Male
  Weight: 83.9 kg

DRUGS (7)
  1. GABAPENTIN [Suspect]
     Indication: CARDIAC DISORDER
     Dosage: UNK
  2. GABAPENTIN [Suspect]
     Indication: ANGIOPATHY
  3. GABAPENTIN [Suspect]
     Indication: PERIPHERAL ARTERIAL OCCLUSIVE DISEASE
  4. GABAPENTIN [Suspect]
     Indication: VEIN DISORDER
  5. GABAPENTIN [Suspect]
     Indication: ARTERIAL DISORDER
  6. GABAPENTIN [Suspect]
     Indication: PAIN IN EXTREMITY
  7. GABAPENTIN [Suspect]
     Indication: NERVOUS SYSTEM DISORDER

REACTIONS (2)
  - Off label use [Unknown]
  - Drug ineffective for unapproved indication [Unknown]
